FAERS Safety Report 20632700 (Version 1)
Quarter: 2022Q1

REPORT INFORMATION
  Report Type: Spontaneous
  Country: US (occurrence: US)
  Receive Date: 20220324
  Receipt Date: 20220324
  Transmission Date: 20220423
  Serious: Yes (Other)
  Sender: FDA-Public Use
  Company Number: US-JNJFOC-20220336111

PATIENT
  Age: 58 Year
  Sex: Female
  Weight: 108.96 kg

DRUGS (5)
  1. SPRAVATO [Suspect]
     Active Substance: ESKETAMINE
     Indication: Depression
     Dosage: 56 MG, ^3 TOTAL DOSES^
     Dates: start: 20211214, end: 20211221
  2. SPRAVATO [Suspect]
     Active Substance: ESKETAMINE
     Dosage: 84 MG, ^2 TOTAL DOSES^
     Dates: start: 20211223, end: 20211228
  3. SPRAVATO [Suspect]
     Active Substance: ESKETAMINE
     Dosage: 56 MG, ^2 TOTAL DOSES^
     Dates: start: 20220120, end: 20220127
  4. SPRAVATO [Suspect]
     Active Substance: ESKETAMINE
     Dates: start: 20220203, end: 20220203
  5. SPRAVATO [Suspect]
     Active Substance: ESKETAMINE
     Dosage: 84 MG, ^1 TOTAL DOSE^
     Dates: start: 20220207, end: 20220207

REACTIONS (5)
  - Suicidal ideation [Recovered/Resolved]
  - Sleep disorder [Recovering/Resolving]
  - Abnormal dreams [Not Recovered/Not Resolved]
  - Headache [Recovered/Resolved]
  - Panic attack [Recovered/Resolved]

NARRATIVE: CASE EVENT DATE: 20220101
